FAERS Safety Report 5012165-1 (Version None)
Quarter: 2006Q2

REPORT INFORMATION
  Report Type: 
  Country: None (occurrence: None)
  Receive Date: 20060526
  Receipt Date: 20060518
  Transmission Date: 20061013
  Serious: Yes (Other)
  Sender: FDA-Public Use
  Company Number: TR-ABBOTT-06P-161-0333789-00

PATIENT
  Age: 17 Year
  Sex: Female

DRUGS (2)
  1. VALPROIC ACID [Suspect]
     Indication: DRUG USE FOR UNKNOWN INDICATION
     Route: 065
  2. OLANZAPINE [Interacting]
     Indication: INSOMNIA
     Route: 065

REACTIONS (4)
  - DRUG INTERACTION [None]
  - EXTRAPYRAMIDAL DISORDER [None]
  - INSOMNIA [None]
  - PSYCHOMOTOR HYPERACTIVITY [None]
